FAERS Safety Report 13043601 (Version 15)
Quarter: 2018Q2

REPORT INFORMATION
  Report Type: Report from Study
  Country: AT (occurrence: AT)
  Receive Date: 20161220
  Receipt Date: 20180622
  Transmission Date: 20180711
  Serious: Yes (Death, Hospitalization, Other)
  Sender: FDA-Public Use
  Company Number: AT-INCYTE CORPORATION-2014IN001682

PATIENT

DRUGS (38)
  1. PANTOLOC [Concomitant]
     Active Substance: PANTOPRAZOLE SODIUM
     Indication: PRODUCT USED FOR UNKNOWN INDICATION
     Dosage: UNK
     Route: 065
     Dates: start: 20101014
  2. LAEVOLAC [Concomitant]
     Active Substance: LACTULOSE
     Indication: CONSTIPATION PROPHYLAXIS
     Dosage: UNK
     Route: 065
     Dates: start: 20120130, end: 20131114
  3. GUTTALAX [Concomitant]
     Indication: PROPHYLAXIS
     Dosage: UNK
     Route: 065
     Dates: start: 20170106
  4. NAVOBAN [Concomitant]
     Active Substance: TROPISETRON HYDROCHLORIDE
     Dosage: UNK
     Route: 065
     Dates: start: 20160514, end: 20160906
  5. GASTROSIL [Concomitant]
     Indication: GASTRITIS PROPHYLAXIS
     Dosage: UNK
     Route: 065
     Dates: start: 20160514, end: 20160916
  6. JAKAVI [Suspect]
     Active Substance: RUXOLITINIB
     Dosage: 10 MG, BID (1-0-1)
     Route: 048
     Dates: start: 20150428, end: 20170109
  7. ALEXAN [Concomitant]
     Indication: ERYTHROBLAST COUNT
  8. ZAVEDOS [Concomitant]
     Active Substance: IDARUBICIN
     Indication: SPLENOMEGALY
     Dosage: 10 MG/M2, UNK
     Route: 065
     Dates: start: 20161228
  9. CETRIZIN [Concomitant]
     Indication: PRURITUS GENERALISED
     Dosage: UNK
     Route: 065
     Dates: start: 20120116, end: 20131114
  10. UROSIN [Concomitant]
     Active Substance: ALLOPURINOL
     Indication: PROPHYLAXIS
     Dosage: UNK
     Route: 065
     Dates: start: 20101014
  11. VIDAZA [Concomitant]
     Active Substance: AZACITIDINE
     Dosage: 100 MG, QD
     Route: 065
     Dates: start: 20160708, end: 20160712
  12. BEPANTHEN [Concomitant]
     Indication: STOMATITIS
     Dosage: UNK
     Route: 065
     Dates: start: 20130415, end: 20130920
  13. HYDAL [Concomitant]
     Active Substance: HYDROMORPHONE HYDROCHLORIDE
     Indication: BONE PAIN
     Dosage: UNK
     Route: 065
     Dates: start: 20111118
  14. NAVOBAN [Concomitant]
     Active Substance: TROPISETRON HYDROCHLORIDE
     Indication: GASTRITIS PROPHYLAXIS
     Dosage: UNK
     Route: 065
     Dates: start: 20150218, end: 20150323
  15. OLEOVIT D3 [Concomitant]
     Active Substance: CHOLECALCIFEROL
     Indication: VITAMIN D DECREASED
     Dosage: UNK
     Route: 065
     Dates: start: 20151020
  16. VIDAZA [Concomitant]
     Active Substance: AZACITIDINE
     Indication: SPLENOMEGALY
     Dosage: 50 MG, QD
     Route: 065
     Dates: start: 20160514, end: 20160707
  17. BEPANTHEN [Concomitant]
     Indication: ORAL HERPES
  18. XYLOCAINE [Concomitant]
     Active Substance: LIDOCAINE HYDROCHLORIDE
     Indication: HERPES VIRUS INFECTION
     Dosage: UNK
     Route: 065
     Dates: start: 20130217, end: 20150427
  19. PASPERTIN [Concomitant]
     Indication: GASTRITIS PROPHYLAXIS
     Dosage: UNK UNK, PRN
     Route: 041
     Dates: start: 20150218
  20. ZOVIRAX [Concomitant]
     Active Substance: ACYCLOVIR
     Indication: HERPES VIRUS INFECTION
     Dosage: UNK
     Route: 065
     Dates: start: 20131008
  21. VALACYCLOVIR [Concomitant]
     Active Substance: VALACYCLOVIR HYDROCHLORIDE
     Indication: HERPES VIRUS INFECTION
     Dosage: UNK
     Route: 065
     Dates: start: 20130808, end: 20150428
  22. GUTTALAX [Concomitant]
     Dosage: UNK
     Route: 065
  23. IDARUBICIN [Concomitant]
     Active Substance: IDARUBICIN
     Indication: PRODUCT USED FOR UNKNOWN INDICATION
     Dosage: 10 MG/M2, 4 WEEKLY
     Route: 065
     Dates: start: 20160930
  24. HYCOMINE [Concomitant]
     Active Substance: HYDROCODONE BITARTRATE\PHENYLPROPANOLAMINE HYDROCHLORIDE
     Indication: PRODUCT USED FOR UNKNOWN INDICATION
     Dosage: 100 MG, QD
     Route: 042
     Dates: start: 20160506, end: 20160518
  25. MOLAXOLE [Concomitant]
     Active Substance: POLYETHYLENE GLYCOL 3350\POTASSIUM CHLORIDE\SODIUM BICARBONATE\SODIUM CHLORIDE
     Indication: CONSTIPATION PROPHYLAXIS
     Dosage: UNK
     Route: 065
     Dates: start: 20150427
  26. ALEXAN [Concomitant]
     Indication: ERYTHROBLAST COUNT
     Dosage: 1 DF, QD
     Route: 058
     Dates: start: 20150218, end: 20160324
  27. VIDAZA [Concomitant]
     Active Substance: AZACITIDINE
     Dosage: 100 MG, UNK
     Route: 065
     Dates: start: 20160805, end: 20160811
  28. VIDAZA [Concomitant]
     Active Substance: AZACITIDINE
     Dosage: 150 MG, UNK
     Route: 065
     Dates: start: 20161128, end: 20161204
  29. MEVIR [Concomitant]
     Active Substance: BRIVUDINE
     Indication: HERPES VIRUS INFECTION
     Dosage: UNK
     Route: 065
     Dates: start: 20130920, end: 20131004
  30. IDARUBICIN [Concomitant]
     Active Substance: IDARUBICIN
     Indication: SPLENOMEGALY
     Dosage: 10 MILLIGRAM/SQ. METER
     Route: 065
     Dates: start: 20161228
  31. ALEXAN [Concomitant]
     Indication: SPLENOMEGALY
     Dosage: 2 UNK, UNK
     Route: 058
  32. KONAKION [Concomitant]
     Active Substance: PHYTONADIONE
     Indication: THROMBOCYTOPENIA
     Dosage: UNK
     Route: 065
     Dates: start: 20150128, end: 20150128
  33. JAKAVI [Suspect]
     Active Substance: RUXOLITINIB
     Indication: MYELOFIBROSIS
     Dosage: 20 MG, BID
     Route: 048
     Dates: start: 20110926, end: 20130821
  34. JAKAVI [Suspect]
     Active Substance: RUXOLITINIB
     Dosage: 10 MG, BID (1-0-1)
     Route: 048
     Dates: start: 20150218, end: 20150323
  35. HYDAL [Concomitant]
     Active Substance: HYDROMORPHONE HYDROCHLORIDE
     Indication: BACK PAIN
  36. XYLOCAINE [Concomitant]
     Active Substance: LIDOCAINE HYDROCHLORIDE
     Indication: MOUTH ULCERATION
     Dosage: UNK
     Route: 065
     Dates: start: 201602
  37. XYLOCAINE [Concomitant]
     Active Substance: LIDOCAINE HYDROCHLORIDE
     Indication: MOUTH ULCERATION
  38. KYTRIL [Concomitant]
     Active Substance: GRANISETRON HYDROCHLORIDE
     Indication: GASTRITIS PROPHYLAXIS
     Dosage: UNK
     Route: 065
     Dates: start: 20150410

REACTIONS (27)
  - Anaemia [Recovered/Resolved]
  - Dyspnoea [Recovered/Resolved]
  - Pyrexia [Recovered/Resolved]
  - Haemolysis [Unknown]
  - Anaemia [Recovered/Resolved]
  - Splenomegaly [Recovered/Resolved]
  - Pneumonia [Fatal]
  - Anaemia [Recovered/Resolved]
  - Urinary tract infection [Unknown]
  - General physical health deterioration [Unknown]
  - Anaemia [Unknown]
  - Anaemia [Recovered/Resolved]
  - Dyschezia [Unknown]
  - Abdominal pain [Unknown]
  - Peripheral swelling [Recovered/Resolved]
  - Mouth ulceration [Recovered/Resolved with Sequelae]
  - Leukopenia [Recovered/Resolved]
  - Infection [Recovered/Resolved]
  - Pneumonia [Recovered/Resolved]
  - Thrombocytopenia [Not Recovered/Not Resolved]
  - Abdominal pain upper [Recovered/Resolved]
  - Pyrexia [Recovered/Resolved]
  - Pyrexia [Unknown]
  - Acute myeloid leukaemia [Unknown]
  - Anaemia [Recovered/Resolved]
  - Limb injury [Recovered/Resolved]
  - Pleural effusion [Unknown]

NARRATIVE: CASE EVENT DATE: 20111010
